FAERS Safety Report 19459671 (Version 9)
Quarter: 2025Q1

REPORT INFORMATION
  Report Type: Report from Study
  Country: BE (occurrence: BE)
  Receive Date: 20210624
  Receipt Date: 20250117
  Transmission Date: 20250409
  Serious: Yes (Death, Life-Threatening, Hospitalization)
  Sender: PFIZER
  Company Number: BE-PFIZER INC-2021738727

PATIENT
  Age: 68 Year
  Sex: Female
  Weight: 79 kg

DRUGS (8)
  1. MEDROL [Suspect]
     Active Substance: METHYLPREDNISOLONE
     Indication: Blood creatinine increased
     Dates: start: 20210610, end: 20210612
  2. INCB-099280 [Suspect]
     Active Substance: INCB-099280
     Indication: Cervix carcinoma
     Dosage: 200 MG, QD, TABLET
     Route: 048
     Dates: start: 20210311, end: 20210602
  3. BISOPROLOL [Concomitant]
     Active Substance: BISOPROLOL
  4. DEXPANTHENOL [Concomitant]
     Active Substance: DEXPANTHENOL
  5. ZALDIAR [Concomitant]
     Active Substance: ACETAMINOPHEN\TRAMADOL HYDROCHLORIDE
  6. DAFALGAN CODEINE [Concomitant]
     Active Substance: ACETAMINOPHEN\CODEINE PHOSPHATE
     Dates: start: 20210413
  7. LACTULOSE [Concomitant]
     Active Substance: LACTULOSE
     Dates: start: 20210416
  8. LYRICA [Concomitant]
     Active Substance: PREGABALIN
     Dates: start: 20210429

REACTIONS (1)
  - Sepsis [Fatal]

NARRATIVE: CASE EVENT DATE: 20210612
